FAERS Safety Report 11054467 (Version 1)
Quarter: 2015Q2

REPORT INFORMATION
  Report Type: Spontaneous
  Country: SE (occurrence: None)
  Receive Date: 20150420
  Receipt Date: 20150420
  Transmission Date: 20150821
  Serious: Yes (Death, Hospitalization)
  Sender: FDA-Public Use
  Company Number: NSR_02044_2015

PATIENT
  Age: 31 Year
  Sex: Male
  Weight: 140 kg

DRUGS (9)
  1. BUPRENORPHINE (BUPRENORPHINE) [Suspect]
     Active Substance: BUPRENORPHINE
     Indication: PRODUCT USED FOR UNKNOWN INDICATION
     Dosage: DF
  2. TRAMADOL (TRAMADOL) [Suspect]
     Active Substance: TRAMADOL
     Indication: PRODUCT USED FOR UNKNOWN INDICATION
     Dosage: DF
  3. FLUNITRAZEPAM (FLUNITRAZEPAM) [Suspect]
     Active Substance: FLUNITRAZEPAM
     Indication: PRODUCT USED FOR UNKNOWN INDICATION
  4. BENZODIAZEPINE RELATED DRUGS (BENZODIAZEPINES) [Suspect]
     Active Substance: BENZODIAZEPINE
     Indication: PRODUCT USED FOR UNKNOWN INDICATION
     Dosage: DF
  5. TETRANHYDROCANNABINOL [Suspect]
     Active Substance: DRONABINOL
     Indication: PRODUCT USED FOR UNKNOWN INDICATION
     Dosage: DF
  6. CLOMIPRAMINE (CLOMIPRAMINE) [Suspect]
     Active Substance: CLOMIPRAMINE
     Indication: PRODUCT USED FOR UNKNOWN INDICATION
  7. LISDEXAMPHETAMINE [Suspect]
     Active Substance: LISDEXAMFETAMINE
     Indication: PRODUCT USED FOR UNKNOWN INDICATION
  8. BETA-METYLPHENYLAMINE [Suspect]
     Active Substance: DIETARY SUPPLEMENT
     Indication: PRODUCT USED FOR UNKNOWN INDICATION
     Dosage: DF
  9. CAFFEINE (CAFFEINE) [Suspect]
     Active Substance: CAFFEINE
     Indication: PRODUCT USED FOR UNKNOWN INDICATION
     Dosage: DF

REACTIONS (13)
  - Disorientation [None]
  - No therapeutic response [None]
  - Confusional state [None]
  - Aggression [None]
  - Drug screen positive [None]
  - Hyperhidrosis [None]
  - Circulatory collapse [None]
  - Agitation [None]
  - Seizure [None]
  - Stress [None]
  - Hyperthermia [None]
  - Blood creatine phosphokinase increased [None]
  - Tachycardia [None]
